FAERS Safety Report 18219136 (Version 3)
Quarter: 2020Q4

REPORT INFORMATION
  Report Type: Spontaneous
  Country: US (occurrence: US)
  Receive Date: 20200901
  Receipt Date: 20201023
  Transmission Date: 20210113
  Serious: No
  Sender: FDA-Public Use
  Company Number: US-BLUEPRINT MEDICINES CORPORATION-SP-US-2020-000934

PATIENT
  Sex: Male

DRUGS (1)
  1. AYVAKIT [Suspect]
     Active Substance: AVAPRITINIB
     Indication: GASTROINTESTINAL STROMAL TUMOUR
     Route: 048
     Dates: start: 20200805

REACTIONS (10)
  - Anosmia [Unknown]
  - Amnesia [Unknown]
  - Headache [Recovered/Resolved]
  - Glycosylated haemoglobin increased [Unknown]
  - Oropharyngeal pain [Recovered/Resolved]
  - Diarrhoea [Recovered/Resolved]
  - Ageusia [Unknown]
  - Eyelid margin crusting [Unknown]
  - Malaise [Recovering/Resolving]
  - Fatigue [Recovered/Resolved]
